FAERS Safety Report 9307028 (Version 5)
Quarter: 2014Q3

REPORT INFORMATION
  Report Type: Spontaneous
  Country: US (occurrence: US)
  Receive Date: 20130523
  Receipt Date: 20140811
  Transmission Date: 20150326
  Serious: Yes (Hospitalization, Other)
  Sender: FDA-Public Use
  Company Number: US-009507513-1305USA012222

PATIENT
  Sex: Male
  Weight: 115.9 kg

DRUGS (1)
  1. PROPECIA [Suspect]
     Active Substance: FINASTERIDE
     Indication: ALOPECIA
     Dosage: 1 MG, UNK
     Route: 048
     Dates: start: 200208, end: 200706

REACTIONS (36)
  - Penile size reduced [Unknown]
  - Constipation [Unknown]
  - Traumatic lung injury [Unknown]
  - Muscle spasms [Unknown]
  - Hypoaesthesia [Unknown]
  - Trigger finger [Unknown]
  - Pain [Unknown]
  - Brain injury [Unknown]
  - Post laminectomy syndrome [Unknown]
  - Vitamin D deficiency [Unknown]
  - Blood cholesterol increased [Unknown]
  - Back pain [Unknown]
  - Joint stiffness [Unknown]
  - Limb asymmetry [Unknown]
  - Anxiety [Not Recovered/Not Resolved]
  - Post-traumatic stress disorder [Unknown]
  - Radiculitis [Unknown]
  - Gait disturbance [Unknown]
  - Sexual dysfunction [Not Recovered/Not Resolved]
  - Groin pain [Unknown]
  - Hypogonadism male [Unknown]
  - Depression [Not Recovered/Not Resolved]
  - Back disorder [Unknown]
  - Spinal fusion surgery [Unknown]
  - Intervertebral disc degeneration [Unknown]
  - Hormone level abnormal [Unknown]
  - Hypertension [Unknown]
  - Muscle strain [Unknown]
  - Radiculitis brachial [Unknown]
  - Deafness neurosensory [Unknown]
  - Penis injury [Unknown]
  - Poor quality sleep [Unknown]
  - Muscle injury [Unknown]
  - Erectile dysfunction [Not Recovered/Not Resolved]
  - Hypoaesthesia [Unknown]
  - Depression [Unknown]

NARRATIVE: CASE EVENT DATE: 2002
